FAERS Safety Report 25946194 (Version 1)
Quarter: 2025Q4

REPORT INFORMATION
  Report Type: Report from Study
  Country: PH (occurrence: PH)
  Receive Date: 20251022
  Receipt Date: 20251022
  Transmission Date: 20260118
  Serious: Yes (Death, Other)
  Sender: ALEXION PHARMACEUTICALS
  Company Number: PH-AstraZeneca-CH-00964432A

PATIENT
  Age: 75 Year
  Sex: Female
  Weight: 43 kg

DRUGS (1)
  1. OSIMERTINIB [Suspect]
     Active Substance: OSIMERTINIB
     Indication: Lung neoplasm malignant
     Dosage: 80 MILLIGRAM, QD
     Dates: start: 20250903

REACTIONS (2)
  - Respiratory failure [Fatal]
  - Supraventricular tachycardia [Fatal]

NARRATIVE: CASE EVENT DATE: 20251004
